FAERS Safety Report 4548015-7 (Version None)
Quarter: 2004Q4

REPORT INFORMATION
  Report Type: 
  Country: None (occurrence: None)
  Receive Date: 20041227
  Receipt Date: 20040916
  Transmission Date: 20050328
  Serious: No
  Sender: FDA-Public Use
  Company Number: 04P-163-0274214-00

PATIENT
  Age: 60 Year
  Sex: Female
  Weight: 57.3347 kg

DRUGS (10)
  1. HUMIRA [Suspect]
     Indication: RHEUMATOID ARTHRITIS
     Dosage: 40 MG, 1 IN 2 WK, SUBCUTANEOUS
     Route: 058
     Dates: start: 20031101, end: 20040726
  2. FOLIC ACID [Concomitant]
  3. HYDROXYCHLOROQUINE PHOSPHATE [Concomitant]
  4. NABUMETONE [Concomitant]
  5. AMITRIPTYLINE HYDROCHLORIDE [Concomitant]
  6. MTHOTREXATE [Concomitant]
  7. LEVOTHYROXINE SODIUM [Concomitant]
  8. VICODIN [Concomitant]
  9. ESTROGENS CONJUGATED [Concomitant]
  10. DIAZEPAM [Concomitant]

REACTIONS (8)
  - APHONIA [None]
  - ARTHRALGIA [None]
  - BACK PAIN [None]
  - DRY EYE [None]
  - FIBROMYALGIA [None]
  - HOARSENESS [None]
  - INJECTION SITE RASH [None]
  - LARYNGITIS [None]
